FAERS Safety Report 18714267 (Version 3)
Quarter: 2021Q1

REPORT INFORMATION
  Report Type: Report from Study
  Country: CN (occurrence: CN)
  Receive Date: 20210107
  Receipt Date: 20210128
  Transmission Date: 20210419
  Serious: Yes (Hospitalization)
  Sender: FDA-Public Use
  Company Number: CN-PFIZER INC-2020521014

PATIENT
  Age: 63 Year
  Sex: Male
  Weight: 64 kg

DRUGS (10)
  1. PREGABALIN. [Concomitant]
     Active Substance: PREGABALIN
     Indication: PAIN IN EXTREMITY
     Dosage: 75 MG, ST
     Route: 048
     Dates: start: 20201208, end: 20201208
  2. G?CSF [Concomitant]
     Active Substance: GRANULOCYTE COLONY-STIMULATING FACTOR NOS
     Dosage: 300 UG, 2X/DAY, INTRAVENOUS INJECTION
     Route: 042
     Dates: start: 20201206, end: 20201206
  3. CARBOPLATIN. [Suspect]
     Active Substance: CARBOPLATIN
     Indication: SQUAMOUS CELL CARCINOMA OF LUNG
     Dosage: [INJECTION] 600 MG, ONCE EVERY THREE WEEKS (Q3W)
     Route: 041
     Dates: start: 20201103
  4. BLINDED THERAPY [Suspect]
     Active Substance: INVESTIGATIONAL PRODUCT
     Indication: SQUAMOUS CELL CARCINOMA OF LUNG
     Dosage: UNK
     Dates: start: 20201102
  5. PREGABALIN. [Concomitant]
     Active Substance: PREGABALIN
     Dosage: 150 MG, BID
     Route: 048
     Dates: start: 20201209, end: 20201216
  6. G?CSF [Concomitant]
     Active Substance: GRANULOCYTE COLONY-STIMULATING FACTOR NOS
     Dosage: 300 UG, ST, INTRAVENOUS INJECTION
     Route: 042
     Dates: start: 20201207, end: 20201207
  7. PENICILLIN NOS [Concomitant]
     Active Substance: PENICILLIN
     Indication: PROPHYLAXIS
     Dosage: UNK, 1X/DAY
     Route: 041
     Dates: start: 20201205, end: 20201207
  8. MECOBALAMIN [Concomitant]
     Active Substance: METHYLCOBALAMIN
     Indication: HYPOAESTHESIA
     Dosage: 0.5 MG, 3X/DAY
     Route: 048
     Dates: start: 20201105
  9. PACLITAXEL. [Suspect]
     Active Substance: PACLITAXEL
     Indication: SQUAMOUS CELL CARCINOMA OF LUNG
     Dosage: 311.5 MG, 1X/DAY
     Route: 041
     Dates: start: 20201103
  10. G?CSF [Concomitant]
     Active Substance: GRANULOCYTE COLONY-STIMULATING FACTOR NOS
     Indication: ALPHA INTERFERON THERAPY
     Dosage: 300 UG, ST (IMMEDIATE), INTRAVENOUS INJECTION
     Route: 042
     Dates: start: 20201205, end: 20201205

REACTIONS (1)
  - Staphylococcal infection [Recovered/Resolved]

NARRATIVE: CASE EVENT DATE: 20201216
